FAERS Safety Report 6593749-6 (Version None)
Quarter: 2010Q1

REPORT INFORMATION
  Report Type: 
  Country: None (occurrence: None)
  Receive Date: 20100212
  Receipt Date: 20100127
  Transmission Date: 20100710
  Serious: Yes (Other)
  Sender: FDA-Public Use
  Company Number: 2010SA006751

PATIENT
  Age: 59 Year
  Sex: Male

DRUGS (2)
  1. FLUDARA [Suspect]
     Indication: B-CELL LYMPHOMA RECURRENT
     Dosage: ORAL, EVERY CYCLE, TIME TO ONSET: 3 WEEKS
     Route: 048
  2. RITUXAN [Concomitant]

REACTIONS (2)
  - ASPARTATE AMINOTRANSFERASE INCREASED [None]
  - HEPATIC FUNCTION ABNORMAL [None]
